FAERS Safety Report 10314493 (Version 1)
Quarter: 2014Q3

REPORT INFORMATION
  Report Type: Spontaneous
  Country: CN (occurrence: CN)
  Receive Date: 20140718
  Receipt Date: 20140718
  Transmission Date: 20150326
  Serious: Yes (Other)
  Sender: FDA-Public Use
  Company Number: CN-PFIZER INC-2014200572

PATIENT
  Age: 83 Year
  Sex: Male
  Weight: 58 kg

DRUGS (3)
  1. SOLU-MEDROL [Suspect]
     Active Substance: METHYLPREDNISOLONE SODIUM SUCCINATE
     Indication: CHRONIC OBSTRUCTIVE PULMONARY DISEASE
     Dosage: 80 MG, 1X/DAY
     Route: 041
     Dates: start: 20140211, end: 20140211
  2. ZINACEF [Suspect]
     Active Substance: CEFUROXIME SODIUM
     Indication: CHRONIC OBSTRUCTIVE PULMONARY DISEASE
     Dosage: 3 G, 1X/DAY
     Route: 041
     Dates: start: 20140211, end: 20140211
  3. ZUO KE [Suspect]
     Active Substance: LEVOFLOXACIN
     Indication: CHRONIC OBSTRUCTIVE PULMONARY DISEASE
     Dosage: 0.3 G, 1X/DAY
     Route: 041
     Dates: start: 20140211, end: 20140211

REACTIONS (4)
  - Swelling [Recovering/Resolving]
  - Swelling face [Recovering/Resolving]
  - Palpitations [Recovering/Resolving]
  - Atrial fibrillation [Recovering/Resolving]

NARRATIVE: CASE EVENT DATE: 20140211
